FAERS Safety Report 7949891-8 (Version None)
Quarter: 2011Q4

REPORT INFORMATION
  Report Type: 
  Country: None (occurrence: None)
  Receive Date: 20111123
  Receipt Date: 20111117
  Transmission Date: 20120403
  Serious: Yes (Hospitalization)
  Sender: FDA-Public Use
  Company Number: 2011SP043233

PATIENT
  Age: 59 Year
  Sex: Male

DRUGS (28)
  1. SAPHRIS [Suspect]
     Indication: BIPOLAR I DISORDER
     Dosage: 5 MG;BID;SL
     Route: 060
     Dates: start: 20110804
  2. GLYBURIDE AND METFORMIN HYDROCHLORIDE [Concomitant]
  3. WELLBUTRIN XL [Concomitant]
  4. DOC-Q-LACE [Concomitant]
  5. NEURONTIN [Concomitant]
  6. ALBUTEROL [Concomitant]
  7. SINGULAIR [Concomitant]
  8. RHINOCORT [Concomitant]
  9. TRIILEPTAL [Concomitant]
  10. NYSTATIN [Concomitant]
  11. VERAPAMIL [Concomitant]
  12. ALLEGRA [Concomitant]
  13. ASTELIN [Concomitant]
  14. PERIDEX [Concomitant]
  15. CHLORPROMAZINE [Concomitant]
  16. CELEBREX [Concomitant]
  17. SKELAXIN [Concomitant]
  18. LOVASTATIN [Concomitant]
  19. MELATONIN [Concomitant]
  20. METOPROLOL TARTRATE [Concomitant]
  21. VITAMIN B-12 [Concomitant]
  22. LISINOPRIL [Concomitant]
  23. PULMICORT [Concomitant]
  24. CYMBALTA [Concomitant]
  25. ASPIRIN [Concomitant]
  26. LANTUS [Concomitant]
  27. HYDROCODONE [Concomitant]
  28. PENDEX [Concomitant]

REACTIONS (1)
  - ASTHMA [None]
